FAERS Safety Report 25007120 (Version 1)
Quarter: 2025Q1

REPORT INFORMATION
  Report Type: Spontaneous
  Country: PT (occurrence: None)
  Receive Date: 20250225
  Receipt Date: 20250225
  Transmission Date: 20250408
  Serious: Yes (Other)
  Sender: Alvotech
  Company Number: PT-ALVOTECHPMS-2025-ALVOTECHPMS-003233

PATIENT
  Age: 37 Year
  Sex: Female

DRUGS (1)
  1. ADALIMUMAB [Suspect]
     Active Substance: ADALIMUMAB
     Indication: Behcet^s syndrome
     Dosage: 40 MG EVERY 2 WEEKS

REACTIONS (1)
  - Optic neuropathy [Recovering/Resolving]
